FAERS Safety Report 9565015 (Version 2)
Quarter: 2013Q3

REPORT INFORMATION
  Report Type: Report from Study
  Country: BR (occurrence: BR)
  Receive Date: 20130930
  Receipt Date: 20130930
  Transmission Date: 20140515
  Serious: Yes (Life-Threatening, Other)
  Sender: FDA-Public Use
  Company Number: BR-ROCHE-1249373

PATIENT
  Sex: Female
  Weight: 76 kg

DRUGS (1)
  1. INTERFERON ALFA-2A [Suspect]
     Indication: HEPATITIS C
     Route: 042
     Dates: start: 2005, end: 2006

REACTIONS (3)
  - Drug ineffective [Unknown]
  - Thyroid neoplasm [Recovered/Resolved]
  - Blood glucose increased [Not Recovered/Not Resolved]
